FAERS Safety Report 5157258-3 (Version None)
Quarter: 2006Q4

REPORT INFORMATION
  Report Type: 
  Country: None (occurrence: None)
  Receive Date: 20061127
  Receipt Date: 20060725
  Transmission Date: 20070319
  Serious: Yes (Hospitalization)
  Sender: FDA-Public Use
  Company Number: FR-SP-2006-01954

PATIENT
  Age: 74 Year
  Sex: Male

DRUGS (1)
  1. IMMUCYST [Suspect]
     Indication: BLADDER CANCER
     Route: 043
     Dates: start: 20060524

REACTIONS (13)
  - BACK PAIN [None]
  - BOVINE TUBERCULOSIS [None]
  - CELL DEATH [None]
  - CHOLESTASIS [None]
  - FEELING COLD [None]
  - HYPERSENSITIVITY [None]
  - JAUNDICE [None]
  - LIVER DISORDER [None]
  - LUNG DISORDER [None]
  - PYREXIA [None]
  - RENAL FAILURE [None]
  - TREMOR [None]
  - VOMITING [None]
